FAERS Safety Report 8208736 (Version 2)
Quarter: 2013Q2

REPORT INFORMATION
  Report Type: Spontaneous
  Country: US (occurrence: None)
  Receive Date: 20110916
  Receipt Date: 20120917
  Transmission Date: 20140414
  Serious: Yes (Other)
  Sender: FDA-Public Use
  Company Number: 2011SP029019

PATIENT
  Age: 17 Year
  Sex: Female
  Weight: 72.58 kg

DRUGS (1)
  1. IMPLANON [Suspect]
     Indication: CONTRACEPTION
     Dates: start: 20091007, end: 20110705

REACTIONS (3)
  - OVARIAN CYST [None]
  - ADNEXA UTERI PAIN [None]
  - MENSTRUATION DELAYED [None]
